FAERS Safety Report 23339058 (Version 2)
Quarter: 2024Q1

REPORT INFORMATION
  Report Type: Report from Study
  Country: JP (occurrence: JP)
  Receive Date: 20231226
  Receipt Date: 20240326
  Transmission Date: 20240410
  Serious: Yes (Death, Other)
  Sender: FDA-Public Use
  Company Number: JP-TAIHOP-2023-009260

PATIENT
  Age: 61 Year
  Sex: Male
  Weight: 75.5 kg

DRUGS (1)
  1. LYTGOBI [Suspect]
     Active Substance: FUTIBATINIB
     Indication: Bile duct cancer
     Route: 048
     Dates: start: 20231020, end: 20231209

REACTIONS (3)
  - Disease progression [Fatal]
  - Hyperphosphataemia [Recovered/Resolved]
  - Stomatitis [Recovering/Resolving]

NARRATIVE: CASE EVENT DATE: 20231023
